FAERS Safety Report 21835275 (Version 1)
Quarter: 2023Q1

REPORT INFORMATION
  Report Type: Spontaneous
  Country: FR (occurrence: FR)
  Receive Date: 20230109
  Receipt Date: 20230109
  Transmission Date: 20230417
  Serious: Yes (Other)
  Sender: FDA-Public Use
  Company Number: FR-NOVOPROD-1008377

PATIENT
  Age: 79 Year
  Sex: Female

DRUGS (1)
  1. NOVORAPID [Suspect]
     Active Substance: INSULIN ASPART
     Indication: Product used for unknown indication
     Dosage: UNK
     Dates: start: 2015

REACTIONS (5)
  - White matter lesion [Unknown]
  - Hot flush [Unknown]
  - Dizziness [Unknown]
  - Dyspnoea [Unknown]
  - Blood glucose abnormal [Unknown]
